FAERS Safety Report 25854696 (Version 2)
Quarter: 2025Q4

REPORT INFORMATION
  Report Type: Spontaneous
  Country: US (occurrence: US)
  Receive Date: 20250927
  Receipt Date: 20251117
  Transmission Date: 20260117
  Serious: Yes (Other)
  Sender: SANOFI AVENTIS
  Company Number: US-SA-2025SA285949

PATIENT
  Age: 34 Year
  Sex: Female

DRUGS (3)
  1. DUPIXENT [Suspect]
     Active Substance: DUPILUMAB
     Indication: Eczema
     Dosage: 600 MG, 1X
     Route: 058
     Dates: start: 20250617, end: 20250617
  2. DUPIXENT [Suspect]
     Active Substance: DUPILUMAB
     Indication: Dermatitis atopic
     Dosage: 300 MG, QOW
     Route: 058
     Dates: start: 2025, end: 2025
  3. PREDNISONE [Concomitant]
     Active Substance: PREDNISONE

REACTIONS (15)
  - Peritonsillar abscess [Recovered/Resolved]
  - Illness [Unknown]
  - Rebound eczema [Unknown]
  - Product dose omission issue [Unknown]
  - Pruritus [Unknown]
  - Acne [Unknown]
  - Ingrown hair [Unknown]
  - Swelling [Unknown]
  - Pharyngeal swelling [Recovered/Resolved]
  - Gastrointestinal infection [Recovered/Resolved]
  - Pyrexia [Recovered/Resolved]
  - Hyperhidrosis [Recovered/Resolved]
  - Bacterial infection [Recovered/Resolved]
  - Oropharyngeal pain [Recovered/Resolved]
  - Erythema [Unknown]

NARRATIVE: CASE EVENT DATE: 20250101
